FAERS Safety Report 4501424-4 (Version None)
Quarter: 2004Q4

REPORT INFORMATION
  Report Type: 
  Country: None (occurrence: None)
  Receive Date: 20041109
  Receipt Date: 20041026
  Transmission Date: 20050328
  Serious: Yes (Hospitalization)
  Sender: FDA-Public Use
  Company Number: DRON00204003858

PATIENT
  Age: 78 Year
  Sex: Male
  Weight: 57.5 kg

DRUGS (5)
  1. MARINOL [Suspect]
     Indication: APPETITE DISORDER
     Dosage: 2.5 MILLIGRAM (S) QD ORAL
     Route: 048
     Dates: start: 20040917, end: 20040917
  2. CHEMOTHERAPY (CHEMOTHERAPY) [Concomitant]
  3. NIFEDIPINE [Concomitant]
  4. ATENOLOL [Concomitant]
  5. SIMVASTATIN [Concomitant]

REACTIONS (3)
  - DEHYDRATION [None]
  - NAUSEA [None]
  - VOMITING [None]
